FAERS Safety Report 4883147-5 (Version None)
Quarter: 2006Q1

REPORT INFORMATION
  Report Type: 
  Country: None (occurrence: None)
  Receive Date: 20060117
  Receipt Date: 20060117
  Transmission Date: 20060701
  Serious: Yes (Disabling)
  Sender: FDA-Public Use
  Company Number: None

PATIENT

DRUGS (2)
  1. MARCAINE [Suspect]
     Indication: ANAESTHESIA
     Dosage: 2ML SINGLE SHOT IT
     Route: 037
     Dates: start: 20050301, end: 20051201
  2. MARCAINE [Suspect]
     Indication: CAESAREAN SECTION
     Dosage: 2ML SINGLE SHOT IT
     Route: 037
     Dates: start: 20050301, end: 20051201

REACTIONS (4)
  - ANAESTHETIC COMPLICATION [None]
  - DRUG EFFECT DECREASED [None]
  - DRUG EXPOSURE DURING PREGNANCY [None]
  - PHARMACEUTICAL PRODUCT COMPLAINT [None]
